FAERS Safety Report 6435750-9 (Version None)
Quarter: 2009Q4

REPORT INFORMATION
  Report Type: 
  Country: None (occurrence: None)
  Receive Date: 20091111
  Receipt Date: 20091030
  Transmission Date: 20100525
  Serious: No
  Sender: FDA-Public Use
  Company Number: US-JNJFOC-20091100497

PATIENT
  Sex: Male
  Weight: 71.67 kg

DRUGS (6)
  1. FENTANYL TRANSDERMAL SYSTEM [Suspect]
     Indication: BACK PAIN
     Route: 062
     Dates: start: 20091009
  2. TRAZODONE HCL [Concomitant]
     Indication: SLEEP DISORDER
     Route: 048
     Dates: start: 20040101
  3. ZOLOFT [Concomitant]
     Indication: PANIC DISORDER
     Route: 048
     Dates: start: 20030101
  4. LORAZEPAM [Concomitant]
     Indication: ANXIETY
     Route: 048
     Dates: start: 20090701
  5. PANTOPRAZOLE [Concomitant]
     Indication: GASTROOESOPHAGEAL REFLUX DISEASE
     Route: 048
     Dates: start: 20040101
  6. LACTULOSE [Concomitant]
     Indication: CONSTIPATION
     Route: 048
     Dates: start: 20080101

REACTIONS (1)
  - WRONG TECHNIQUE IN DRUG USAGE PROCESS [None]
